FAERS Safety Report 15417287 (Version 2)
Quarter: 2018Q4

REPORT INFORMATION
  Report Type: Spontaneous
  Country: PE (occurrence: PE)
  Receive Date: 20180924
  Receipt Date: 20181008
  Transmission Date: 20190204
  Serious: Yes (Hospitalization)
  Sender: FDA-Public Use
  Company Number: PE-ROCHE-2188040

PATIENT
  Age: 78 Year
  Sex: Female

DRUGS (2)
  1. COTELLIC [Suspect]
     Active Substance: COBIMETINIB
     Indication: METASTATIC MALIGNANT MELANOMA
     Route: 065
  2. ZELBORAF [Suspect]
     Active Substance: VEMURAFENIB
     Indication: METASTATIC MALIGNANT MELANOMA
     Route: 065

REACTIONS (9)
  - Rash [Not Recovered/Not Resolved]
  - Hypoglycaemia [Recovering/Resolving]
  - Renal failure [Recovering/Resolving]
  - Cardiac disorder [Recovering/Resolving]
  - Renal disorder [Recovering/Resolving]
  - Anuria [Recovering/Resolving]
  - Mucosal inflammation [Recovering/Resolving]
  - Cardiac failure [Unknown]
  - Pancreatitis acute [Recovering/Resolving]
